FAERS Safety Report 6595095-3 (Version None)
Quarter: 2010Q1

REPORT INFORMATION
  Report Type: 
  Country: None (occurrence: None)
  Receive Date: 20100222
  Receipt Date: 20100210
  Transmission Date: 20100710
  Serious: Yes (Hospitalization)
  Sender: FDA-Public Use
  Company Number: JP-ELI_LILLY_AND_COMPANY-JP201002003730

PATIENT
  Age: 35 Year
  Sex: Male

DRUGS (1)
  1. ZYPREXA [Suspect]
     Indication: SCHIZOPHRENIA
     Route: 048

REACTIONS (3)
  - ACUTE HEPATIC FAILURE [None]
  - DISSEMINATED INTRAVASCULAR COAGULATION [None]
  - HEAT ILLNESS [None]
